FAERS Safety Report 9849772 (Version 1)
Quarter: 2013Q4

REPORT INFORMATION
  Report Type: Spontaneous
  Country: US (occurrence: None)
  Receive Date: 20131226
  Receipt Date: 20131226
  Transmission Date: 20140711
  Serious: Yes (Other)
  Sender: FDA-Public Use
  Company Number: PHEH2013US002062

PATIENT
  Sex: Male

DRUGS (4)
  1. ZOMETA (ZOLEDRONATE) SOLUTION FOR INJECTION [Suspect]
     Indication: METASTASES TO BONE
     Route: 042
  2. LUPRON (LEUPRORELIN ACETATE) [Concomitant]
  3. CASODEX (BICALUTAMIDE) [Concomitant]
  4. TAXOTERE (DOCETAXEL) [Concomitant]

REACTIONS (2)
  - Prostate cancer metastatic [None]
  - Malignant neoplasm progression [None]
